FAERS Safety Report 6189377-7 (Version None)
Quarter: 2009Q2

REPORT INFORMATION
  Report Type: 
  Country: None (occurrence: None)
  Receive Date: 20090512
  Receipt Date: 20090427
  Transmission Date: 20091009
  Serious: Yes (Hospitalization)
  Sender: FDA-Public Use
  Company Number: 09-051

PATIENT
  Age: 63 Year
  Sex: Male

DRUGS (4)
  1. CEFTRIAXONE [Suspect]
  2. DOXYCYCLINE (MANUFACTURER UNKNOWN) [Suspect]
  3. MEROPENEM (MANUFACTURER UNKNOWN) [Suspect]
  4. VANCOMYCIN (MANUFACTURER UNKNOWN) [Suspect]

REACTIONS (3)
  - DIARRHOEA [None]
  - NOSOCOMIAL INFECTION [None]
  - STAPHYLOCOCCAL INFECTION [None]
